FAERS Safety Report 17892588 (Version 2)
Quarter: 2020Q2

REPORT INFORMATION
  Report Type: Spontaneous
  Country: US (occurrence: US)
  Receive Date: 20200612
  Receipt Date: 20200619
  Transmission Date: 20200714
  Serious: Yes (Other)
  Sender: FDA-Public Use
  Company Number: US-GILEAD-2020-0470679

PATIENT
  Age: 69 Year
  Sex: Male
  Weight: 76.8 kg

DRUGS (15)
  1. CEFTRIAXONE. [Concomitant]
     Active Substance: CEFTRIAXONE
  2. NS [Concomitant]
     Active Substance: SODIUM CHLORIDE
  3. THIAMINE. [Concomitant]
     Active Substance: THIAMINE
  4. MORPHINE [Concomitant]
     Active Substance: MORPHINE
  5. ONDANSETRON [Concomitant]
     Active Substance: ONDANSETRON
  6. AZITHROMYCIN ANHYDROUS. [Concomitant]
     Active Substance: AZITHROMYCIN ANHYDROUS
  7. ALBUTEROL [SALBUTAMOL] [Concomitant]
     Active Substance: ALBUTEROL
  8. ACETAMINOPHEN. [Concomitant]
     Active Substance: ACETAMINOPHEN
  9. METHYLPREDNISOLONE. [Concomitant]
     Active Substance: METHYLPREDNISOLONE
  10. PRAVASTATIN. [Concomitant]
     Active Substance: PRAVASTATIN
  11. IOHEXOL [Concomitant]
     Active Substance: IOHEXOL
  12. HEPARIN [Concomitant]
     Active Substance: HEPARIN SODIUM
  13. IPRATROPIUM BROMIDE AND ALBUTEROL SULFATE [Concomitant]
     Active Substance: ALBUTEROL SULFATE\IPRATROPIUM BROMIDE
  14. REMDESIVIR. [Suspect]
     Active Substance: REMDESIVIR
     Indication: COVID-19
     Dosage: 200 MG, ONCE
     Route: 042
     Dates: start: 20200602, end: 20200602
  15. QUETIAPINE [QUETIAPINE FUMARATE] [Concomitant]
     Active Substance: QUETIAPINE FUMARATE

REACTIONS (5)
  - Blood pressure decreased [Recovered/Resolved]
  - Hyperhidrosis [Recovering/Resolving]
  - Heart rate decreased [Recovered/Resolved]
  - Infusion related reaction [Recovering/Resolving]
  - Chills [Not Recovered/Not Resolved]

NARRATIVE: CASE EVENT DATE: 20200602
